FAERS Safety Report 7325297-X (Version None)
Quarter: 2011Q1

REPORT INFORMATION
  Report Type: 
  Country: None (occurrence: None)
  Receive Date: 20110302
  Receipt Date: 20110218
  Transmission Date: 20110831
  Serious: Yes (Hospitalization)
  Sender: FDA-Public Use
  Company Number: ES-JNJFOC-20110207065

PATIENT
  Age: 54 Year
  Sex: Male

DRUGS (6)
  1. OMEPRAZOLE [Concomitant]
  2. MEZAVANT [Concomitant]
     Route: 048
  3. IMMUNOSUPPRESSANTS [Concomitant]
  4. MASTICAL D [Concomitant]
  5. REMICADE [Suspect]
     Indication: COLITIS ULCERATIVE
     Route: 042
  6. DACORTIN [Concomitant]

REACTIONS (6)
  - DISSEMINATED TUBERCULOSIS [None]
  - ARTERIOSCLEROSIS [None]
  - IRON DEFICIENCY ANAEMIA [None]
  - LYMPHADENOPATHY MEDIASTINAL [None]
  - CANDIDIASIS [None]
  - COLITIS ULCERATIVE [None]
